FAERS Safety Report 21661264 (Version 1)
Quarter: 2022Q4

REPORT INFORMATION
  Report Type: Spontaneous
  Country: US (occurrence: None)
  Receive Date: 20221130
  Receipt Date: 20221130
  Transmission Date: 20230113
  Serious: Yes (Other)
  Sender: FDA-Public Use
  Company Number: 2022A386988

PATIENT
  Age: 87 Year
  Sex: Male

DRUGS (2)
  1. CRESTOR [Suspect]
     Active Substance: ROSUVASTATIN CALCIUM
     Indication: Blood cholesterol
     Route: 048
  2. CRESTOR [Suspect]
     Active Substance: ROSUVASTATIN CALCIUM
     Indication: Blood cholesterol
     Route: 048

REACTIONS (19)
  - Renal failure [Unknown]
  - Rhabdomyolysis [Unknown]
  - Muscle atrophy [Unknown]
  - Amnesia [Unknown]
  - Myalgia [Unknown]
  - Depression [Unknown]
  - Balance disorder [Unknown]
  - Myopathy [Unknown]
  - Mobility decreased [Unknown]
  - Diarrhoea [Unknown]
  - Nervous system disorder [Unknown]
  - Gastrointestinal disorder [Unknown]
  - Myalgia [Unknown]
  - Fall [Unknown]
  - Condition aggravated [Unknown]
  - Fatigue [Unknown]
  - Cognitive disorder [Unknown]
  - Asthenia [Unknown]
  - Arthralgia [Unknown]
